FAERS Safety Report 4347081-1 (Version None)
Quarter: 2004Q2

REPORT INFORMATION
  Report Type: 
  Country: None (occurrence: None)
  Receive Date: 20040426
  Receipt Date: 20040419
  Transmission Date: 20050107
  Serious: Yes (Hospitalization)
  Sender: FDA-Public Use
  Company Number: FR-GLAXOSMITHKLINE-B0330160A

PATIENT
  Age: 59 Year
  Sex: Female

DRUGS (6)
  1. AUGMENTIN [Suspect]
     Indication: PYELONEPHRITIS
     Dosage: 3G PER DAY
     Route: 048
     Dates: start: 20040215, end: 20040224
  2. LEVOTHYROXINE SODIUM [Concomitant]
     Indication: HYPOTHYROIDISM
     Route: 048
  3. FENOFIBRATE [Concomitant]
     Route: 048
  4. LODOZ [Concomitant]
     Indication: ESSENTIAL HYPERTENSION
     Dosage: 5MG PER DAY
     Route: 048
  5. METFORMIN HCL [Concomitant]
     Indication: DIABETES MELLITUS
     Route: 048
  6. GLUCOR [Concomitant]
     Indication: DIABETES MELLITUS
     Route: 048

REACTIONS (2)
  - ANGIONEUROTIC OEDEMA [None]
  - URTICARIA [None]
